FAERS Safety Report 16262467 (Version 3)
Quarter: 2019Q2

REPORT INFORMATION
  Report Type: Report from Study
  Country: JP (occurrence: JP)
  Receive Date: 20190501
  Receipt Date: 20190617
  Transmission Date: 20190711
  Serious: Yes (Life-Threatening, Other)
  Sender: FDA-Public Use
  Company Number: JP-CELLTRION INC.-2019JP020612

PATIENT

DRUGS (12)
  1. PREDNISOLONE. [Concomitant]
     Active Substance: PREDNISOLONE
     Indication: COLITIS ULCERATIVE
     Dosage: UNK
     Dates: start: 20161128, end: 20170222
  2. MIYA-BM [Concomitant]
     Active Substance: CLOSTRIDIUM BUTYRICUM SPORES STRAIN M-55
     Dosage: UNK
     Dates: start: 20161212
  3. NEXIUM [Concomitant]
     Active Substance: ESOMEPRAZOLE MAGNESIUM
     Dosage: UNK
     Dates: start: 20151027, end: 20171204
  4. CIPROXAN [CIPROFLOXACIN HYDROCHLORIDE] [Concomitant]
     Dosage: UNK
     Dates: start: 20171120, end: 20180510
  5. FLAGYL [Concomitant]
     Active Substance: METRONIDAZOLE\METRONIDAZOLE HYDROCHLORIDE
     Dosage: UNK
     Dates: start: 20171120, end: 20180510
  6. ENTERONON-R [Concomitant]
     Active Substance: PROBIOTICS NOS
     Dosage: UNK
     Dates: start: 20151111
  7. INFLIXIMAB BS FOR I.V. INFUSION100 MG [NK] [Suspect]
     Active Substance: INFLIXIMAB
     Indication: COLITIS ULCERATIVE
     Dosage: 400 MILLIGRAM, EVERY DAY
     Route: 041
     Dates: start: 20180607, end: 20180607
  8. ZOLPIDEM TARTRATE. [Concomitant]
     Active Substance: ZOLPIDEM TARTRATE
     Indication: PROPHYLAXIS
     Dosage: UNK
     Dates: start: 20151024, end: 20170828
  9. LIVACT [AMINO ACIDS NOS] [Concomitant]
     Indication: CIRRHOSIS ALCOHOLIC
     Dosage: 12.45 GRAM EVERY DAY
     Dates: start: 20180821
  10. LIALDA [Concomitant]
     Active Substance: MESALAMINE
     Dosage: UNK
     Dates: start: 20170202
  11. MAGNESIUM OXIDE. [Concomitant]
     Active Substance: MAGNESIUM OXIDE
     Indication: CONSTIPATION
     Dosage: 1150 MILLIGRAM EVERY DAY
     Dates: start: 20181115
  12. TAKECAB [Concomitant]
     Active Substance: VONOPRAZAN FUMURATE
     Indication: GASTROOESOPHAGEAL REFLUX DISEASE
     Dosage: UNK
     Dates: start: 20180115

REACTIONS (3)
  - Portal vein thrombosis [Not Recovered/Not Resolved]
  - Intentional overdose [Unknown]
  - Hepatocellular carcinoma [Not Recovered/Not Resolved]

NARRATIVE: CASE EVENT DATE: 20180607
